FAERS Safety Report 8659077 (Version 2)
Quarter: 2012Q4

REPORT INFORMATION
  Report Type: Report from Study
  Country: DE (occurrence: DE)
  Receive Date: 20120710
  Receipt Date: 20121120
  Transmission Date: 20130627
  Serious: Yes (Death, Life-Threatening, Hospitalization)
  Sender: FDA-Public Use
  Company Number: DE-ROCHE-1084894

PATIENT
  Age: 65 None
  Sex: Male

DRUGS (2)
  1. CAPECITABINE [Suspect]
     Indication: RECTAL CANCER
     Dosage: last dose prior to SAE: 23/Mar/2011
     Route: 048
     Dates: start: 20110214
  2. OXALIPLATIN [Suspect]
     Indication: RECTAL CANCER
     Dosage: last dose prior to SAE: 14/Mar/2011
     Route: 042
     Dates: start: 20110214

REACTIONS (4)
  - Haemoglobin decreased [Fatal]
  - Acute abdomen [Fatal]
  - Splenic lesion [Fatal]
  - Multi-organ failure [Fatal]
